FAERS Safety Report 9371127 (Version 1)
Quarter: 2013Q2

REPORT INFORMATION
  Report Type: Spontaneous
  Country: JP (occurrence: JP)
  Receive Date: 20130627
  Receipt Date: 20130627
  Transmission Date: 20140414
  Serious: Yes (Other)
  Sender: FDA-Public Use
  Company Number: JP-ACCORD-018243

PATIENT
  Age: 46 Year
  Sex: Female

DRUGS (1)
  1. PACLITAXEL [Suspect]
     Indication: BREAST CANCER
     Dosage: BIWEEKLY I.V. ADMINISTRATION OF PACLITAXEL FOR 3-4 MONTHS
     Route: 042

REACTIONS (1)
  - Cutaneous lupus erythematosus [Recovered/Resolved]
